FAERS Safety Report 15946321 (Version 1)
Quarter: 2019Q1

REPORT INFORMATION
  Report Type: Spontaneous
  Country: US (occurrence: US)
  Receive Date: 20190211
  Receipt Date: 20190211
  Transmission Date: 20190417
  Serious: No
  Sender: FDA-Public Use
  Company Number: US-MILLICENT HOLDINGS LTD.-MILL20190054

PATIENT
  Age: 52 Year
  Sex: Female

DRUGS (3)
  1. FEMRING [Suspect]
     Active Substance: ESTRADIOL ACETATE
     Indication: ATROPHIC VULVOVAGINITIS
     Dosage: UNKNOWN
     Route: 067
     Dates: start: 20190128, end: 20190128
  2. METOPROLOL. [Concomitant]
     Active Substance: METOPROLOL
     Indication: ARRHYTHMIA
     Dosage: UNKNOWN
     Route: 065
  3. FEMRING [Suspect]
     Active Substance: ESTRADIOL ACETATE
     Indication: VULVOVAGINAL DRYNESS

REACTIONS (7)
  - Complication of device insertion [None]
  - Vulvovaginal burning sensation [Not Recovered/Not Resolved]
  - Genital discolouration [Not Recovered/Not Resolved]
  - Vaginal haemorrhage [Not Recovered/Not Resolved]
  - Vulvovaginal discomfort [Not Recovered/Not Resolved]
  - Device expulsion [None]
  - Vaginal discharge [Not Recovered/Not Resolved]

NARRATIVE: CASE EVENT DATE: 201901
